FAERS Safety Report 7017021-5 (Version None)
Quarter: 2010Q3

REPORT INFORMATION
  Report Type: 
  Country: None (occurrence: None)
  Receive Date: 20100927
  Receipt Date: 20100921
  Transmission Date: 20110219
  Serious: Yes (Other)
  Sender: FDA-Public Use
  Company Number: US-PFIZER INC-2010120591

PATIENT
  Sex: Female
  Weight: 103 kg

DRUGS (4)
  1. CELEBREX [Suspect]
     Indication: ARTHRITIS
     Dosage: 200 MG, 1X/DAY
     Route: 048
     Dates: start: 20100101, end: 20100801
  2. BYETTA [Interacting]
     Indication: BLOOD GLUCOSE INCREASED
     Dosage: 5 UG, 2X/DAY INJECTION
     Dates: start: 20100801
  3. VYTORIN [Concomitant]
     Indication: BLOOD CHOLESTEROL INCREASED
     Dosage: UNK
  4. ACTOS [Concomitant]
     Indication: DIABETES MELLITUS
     Dosage: UNK

REACTIONS (5)
  - ABDOMINAL PAIN UPPER [None]
  - BLOOD CHOLESTEROL INCREASED [None]
  - BLOOD GLUCOSE INCREASED [None]
  - DRUG INTERACTION [None]
  - MALAISE [None]
